FAERS Safety Report 12173932 (Version 1)
Quarter: 2016Q1

REPORT INFORMATION
  Report Type: Spontaneous
  Country: US (occurrence: None)
  Receive Date: 20160311
  Receipt Date: 20160311
  Transmission Date: 20160526
  Serious: Yes (Other)
  Sender: FDA-Public Use
  Company Number: None

PATIENT
  Age: 22 Day
  Sex: Male
  Weight: 68.04 kg

DRUGS (1)
  1. TAMIFLU [Suspect]
     Active Substance: OSELTAMIVIR PHOSPHATE
     Dates: start: 20160227, end: 20160229

REACTIONS (3)
  - Panic attack [None]
  - Depression [None]
  - Apparent death [None]

NARRATIVE: CASE EVENT DATE: 20160227
